FAERS Safety Report 13484511 (Version 2)
Quarter: 2017Q4

REPORT INFORMATION
  Report Type: Spontaneous
  Country: US (occurrence: US)
  Receive Date: 20170425
  Receipt Date: 20171218
  Transmission Date: 20180320
  Serious: Yes (Other)
  Sender: FDA-Public Use
  Company Number: US-SHIRE-US201708953

PATIENT
  Age: 74 Year
  Sex: Female
  Weight: 40.36 kg

DRUGS (5)
  1. XIIDRA [Suspect]
     Active Substance: LIFITEGRAST
     Indication: SJOGREN^S SYNDROME
     Dosage: 1 GTT (IN EACH EYE), 2X/DAY:BID
     Route: 047
     Dates: start: 20170305, end: 20170329
  2. COMPAZINE                          /00013302/ [Concomitant]
     Active Substance: PROCHLORPERAZINE EDISYLATE
     Indication: PAIN
  3. COMPAZINE                          /00013302/ [Concomitant]
     Active Substance: PROCHLORPERAZINE EDISYLATE
     Indication: NAUSEA
     Dosage: 5 MG, OTHER (PRN)
     Route: 048
  4. DIAZEPAM. [Concomitant]
     Active Substance: DIAZEPAM
     Indication: MYALGIA
     Dosage: 2.5-10 MG, OTHER (PRN)
     Route: 048
  5. DIAZEPAM. [Concomitant]
     Active Substance: DIAZEPAM
     Indication: ANXIETY

REACTIONS (6)
  - Eye infection [Unknown]
  - Endophthalmitis [Not Recovered/Not Resolved]
  - Product use in unapproved indication [Recovered/Resolved]
  - Vision blurred [Not Recovered/Not Resolved]
  - Visual impairment [Unknown]
  - Vitreous disorder [Recovered/Resolved]

NARRATIVE: CASE EVENT DATE: 20170305
